FAERS Safety Report 5862775-4 (Version None)
Quarter: 2008Q3

REPORT INFORMATION
  Report Type: 
  Country: None (occurrence: None)
  Receive Date: 20080828
  Receipt Date: 20080820
  Transmission Date: 20090109
  Serious: Yes (Hospitalization)
  Sender: FDA-Public Use
  Company Number: US-AVENTIS-200815405US

PATIENT
  Sex: Female
  Weight: 73 kg

DRUGS (6)
  1. LOVENOX [Suspect]
     Indication: THROMBOSIS
     Dates: start: 20080601
  2. PRENATAL VITAMINS                  /01549301/ [Concomitant]
     Indication: PREGNANCY
     Dosage: DOSE: UNK
     Dates: end: 20080819
  3. ZITHROMAX [Concomitant]
     Indication: SINUSITIS
     Dosage: DOSE: UNK
     Dates: start: 20080817
  4. TOPAMAX [Concomitant]
     Indication: MIGRAINE
     Dosage: DOSE: UNK
  5. ZYRTEC-D 12 HOUR [Concomitant]
     Indication: HYPERSENSITIVITY
     Dosage: DOSE: UNK
  6. COUMADIN [Concomitant]
     Indication: THROMBOSIS
     Dosage: DOSE: UNK
     Dates: end: 20080601

REACTIONS (8)
  - ASTHENIA [None]
  - BLOOD POTASSIUM DECREASED [None]
  - DIARRHOEA [None]
  - NAUSEA [None]
  - PAIN IN EXTREMITY [None]
  - STOMACH DISCOMFORT [None]
  - VOMITING [None]
  - WEIGHT DECREASED [None]
